FAERS Safety Report 15474267 (Version 1)
Quarter: 2018Q4

REPORT INFORMATION
  Report Type: Spontaneous
  Country: US (occurrence: US)
  Receive Date: 20181008
  Receipt Date: 20181008
  Transmission Date: 20190205
  Serious: No
  Sender: FDA-Public Use
  Company Number: US-SA-2018SA277246

PATIENT
  Age: 4 Year
  Sex: Male

DRUGS (1)
  1. XYZAL ALLERGY 24HR [Suspect]
     Active Substance: LEVOCETIRIZINE DIHYDROCHLORIDE
     Route: 048

REACTIONS (6)
  - Tachyphrenia [Unknown]
  - Hallucination [Unknown]
  - Sleep terror [Unknown]
  - Crying [Unknown]
  - Anger [Unknown]
  - Insomnia [Unknown]
